FAERS Safety Report 19037576 (Version 1)
Quarter: 2021Q1

REPORT INFORMATION
  Report Type: Spontaneous
  Country: SG (occurrence: SG)
  Receive Date: 20210322
  Receipt Date: 20210322
  Transmission Date: 20210420
  Serious: Yes (Hospitalization)
  Sender: FDA-Public Use
  Company Number: SG-LUPIN PHARMACEUTICALS INC.-2021-03471

PATIENT
  Age: 68 Year
  Sex: Male

DRUGS (5)
  1. QUETIAPINE FUMARATE. [Suspect]
     Active Substance: QUETIAPINE FUMARATE
     Indication: BIPOLAR I DISORDER
     Dosage: UNK
     Route: 065
  2. SODIUM VALPROATE [Suspect]
     Active Substance: VALPROATE SODIUM
     Indication: BIPOLAR I DISORDER
     Dosage: UNK
     Route: 065
  3. HALOPERIDOL. [Concomitant]
     Active Substance: HALOPERIDOL
     Indication: BIPOLAR I DISORDER
     Dosage: 4.5 MILLIGRAM, QD
     Route: 065
  4. OLANZAPINE. [Suspect]
     Active Substance: OLANZAPINE
     Indication: BIPOLAR I DISORDER
     Dosage: UNK
     Route: 065
  5. LITHIUM. [Concomitant]
     Active Substance: LITHIUM
     Indication: BIPOLAR I DISORDER
     Dosage: 1000?1500 MG
     Route: 065

REACTIONS (1)
  - Drug ineffective [Unknown]
